FAERS Safety Report 5294694-9 (Version None)
Quarter: 2007Q2

REPORT INFORMATION
  Report Type: 
  Country: None (occurrence: None)
  Receive Date: 20070412
  Receipt Date: 20070410
  Transmission Date: 20071010
  Serious: Yes (Life-Threatening)
  Sender: FDA-Public Use
  Company Number: NL-BAXTER-2007BH003438

PATIENT
  Sex: Male
  Weight: 109 kg

DRUGS (5)
  1. EXTRANEAL [Suspect]
     Indication: PERITONEAL DIALYSIS
     Route: 033
     Dates: start: 20060130, end: 20070205
  2. EXTRANEAL [Suspect]
     Route: 033
     Dates: start: 20060130, end: 20070205
  3. PHYSIONEAL, UNSPECIFIED PRODUCT [Interacting]
     Indication: PERITONEAL DIALYSIS
     Route: 033
     Dates: start: 20060130, end: 20070205
  4. NUTRINEAL [Suspect]
     Indication: PERITONEAL DIALYSIS
     Dosage: DOSE UNIT:UNKNOWN
     Route: 033
  5. GAMBROSOL [Concomitant]

REACTIONS (4)
  - CARDIAC OUTPUT DECREASED [None]
  - DRUG INEFFECTIVE [None]
  - FLUID OVERLOAD [None]
  - HYPERTENSION [None]
